FAERS Safety Report 9209709 (Version 1)
Quarter: 2013Q2

REPORT INFORMATION
  Report Type: Spontaneous
  Country: IT (occurrence: IT)
  Receive Date: 20130404
  Receipt Date: 20130404
  Transmission Date: 20140414
  Serious: Yes (Other)
  Sender: FDA-Public Use
  Company Number: IT-JNJFOC-20130316413

PATIENT
  Age: 46 Year
  Sex: Male

DRUGS (4)
  1. GOLIMUMAB [Suspect]
     Indication: UVEITIS
     Route: 058
     Dates: start: 201103, end: 201203
  2. METHOTREXATE [Concomitant]
     Route: 065
  3. PREDNISONE [Concomitant]
     Dosage: DOSE AT THE LAST VISIT
     Route: 065
  4. PREDNISONE [Concomitant]
     Dosage: DOSE AT THE BEGINNING OF THE GOLIMUMAB TREATMENT
     Route: 065

REACTIONS (2)
  - Visual acuity reduced [Unknown]
  - Off label use [Unknown]
